FAERS Safety Report 18472170 (Version 1)
Quarter: 2020Q4

REPORT INFORMATION
  Report Type: Report from Study
  Country: None (occurrence: US)
  Receive Date: 20201106
  Receipt Date: 20201106
  Transmission Date: 20210114
  Serious: Yes (Other)
  Sender: FDA-Public Use
  Company Number: US-ABBVIE-20K-163-3638576-00

PATIENT
  Sex: Female

DRUGS (1)
  1. HUMIRA [Suspect]
     Active Substance: ADALIMUMAB
     Indication: PSORIASIS
     Dosage: CITRATE FREE
     Route: 058

REACTIONS (9)
  - Myelitis transverse [Not Recovered/Not Resolved]
  - Brain operation [Unknown]
  - Spinal operation [Unknown]
  - Myelitis [Not Recovered/Not Resolved]
  - Vision blurred [Recovering/Resolving]
  - Arteriovenous malformation [Recovering/Resolving]
  - Hemiparesis [Not Recovered/Not Resolved]
  - Cerebrovascular accident [Recovering/Resolving]
  - Hypoaesthesia [Not Recovered/Not Resolved]
